FAERS Safety Report 21123584 (Version 3)
Quarter: 2022Q3

REPORT INFORMATION
  Report Type: Report from Study
  Country: US (occurrence: US)
  Receive Date: 20220725
  Receipt Date: 20220909
  Transmission Date: 20221026
  Serious: Yes (Other)
  Sender: FDA-Public Use
  Company Number: US-BIOGEN-2022BI01141221

PATIENT
  Sex: Female

DRUGS (12)
  1. TYSABRI [Suspect]
     Active Substance: NATALIZUMAB
     Indication: Multiple sclerosis
     Dosage: INFUSED OVER 1 HOUR
     Route: 050
     Dates: start: 20180817, end: 20220618
  2. TYSABRI [Suspect]
     Active Substance: NATALIZUMAB
     Route: 050
     Dates: start: 20220815
  3. Albuterol (Proair HFA) [Concomitant]
     Indication: Product used for unknown indication
     Dosage: INHALE 2 PUFFS INTO THE LUNGS EVERY 6 HOURS - INHALATION
     Route: 050
  4. Albuterol (Proventil HFA) [Concomitant]
     Indication: Product used for unknown indication
     Dosage: INHALE 2 PUFFS INTO THE LUNGS EVERY 6 HOURS - INHALATION
     Route: 050
  5. Albuterol (Proventil) [Concomitant]
     Indication: Product used for unknown indication
     Dosage: TAKE 1 VIAL (2.5 MG) BY NEBULIZATION EVERY 6 HOURS AS NEED FOR SHORTNESS OF BREATH/DYSPNEA OR WHE...
     Route: 050
     Dates: start: 20210506
  6. VENTOLIN HFA [Concomitant]
     Active Substance: ALBUTEROL SULFATE
     Indication: Product used for unknown indication
     Dosage: INHALE 2 PUFFS INTO THE LUNGS EVERY 6 HOURS - INHALATION
     Route: 050
  7. Hydroxyzine (Atarax) [Concomitant]
     Indication: Product used for unknown indication
     Dosage: 1-2 TABLETS TO BE TAKEN AT BEDTIME
     Route: 050
     Dates: start: 20220414
  8. Ketotifen (Zaditor) [Concomitant]
     Indication: Product used for unknown indication
     Dosage: PLACE 1 DROP INTO THE RIGHT EYE 2 TIMES DAILY - RIGHT EYE
     Route: 050
     Dates: start: 20220207
  9. Lifitegrast (Xiidra) [Concomitant]
     Indication: Product used for unknown indication
     Dosage: PLACE 1 DROP INTO BOTH EYES 2 TIMES DAILY - BOTH EYES
     Route: 050
     Dates: start: 20220103
  10. Multivital PO [Concomitant]
     Indication: Product used for unknown indication
     Route: 050
  11. ZOFRAN [Concomitant]
     Active Substance: ONDANSETRON HYDROCHLORIDE
     Indication: Product used for unknown indication
     Dosage: TAKE 1 TABLET BY MOUTH EVERY 8 HOURS AS NEEDED FOR NAUSEA OR VOMITING
     Route: 050
     Dates: start: 20220414
  12. Valacyclovir (Valtrex) [Concomitant]
     Indication: Product used for unknown indication
     Dosage: 2 TABLETS AT ONSET OF COLD SORES
     Route: 050
     Dates: start: 20210506

REACTIONS (1)
  - Opportunistic infection [Unknown]
